FAERS Safety Report 5820218-0 (Version None)
Quarter: 2008Q3

REPORT INFORMATION
  Report Type: 
  Country: None (occurrence: None)
  Receive Date: 20080724
  Receipt Date: 20080723
  Transmission Date: 20090109
  Serious: Yes (Hospitalization)
  Sender: FDA-Public Use
  Company Number: PHEH1999US01939

PATIENT
  Sex: Female
  Weight: 76 kg

DRUGS (2)
  1. MYCOPHENOLATE MOFETIL [Suspect]
     Dosage: 1 G, BID
     Route: 048
     Dates: start: 19990425
  2. NEORAL [Suspect]
     Route: 048
     Dates: start: 19990424

REACTIONS (1)
  - DRUG LEVEL INCREASED [None]
